FAERS Safety Report 7214065-5 (Version None)
Quarter: 2011Q1

REPORT INFORMATION
  Report Type: 
  Country: None (occurrence: None)
  Receive Date: 20110107
  Receipt Date: 20101229
  Transmission Date: 20110831
  Serious: No
  Sender: FDA-Public Use
  Company Number: US-BIOGENIDEC-2010BI045243

PATIENT
  Age: 29 Year
  Sex: Female

DRUGS (1)
  1. AVONEX [Suspect]
     Indication: MULTIPLE SCLEROSIS
     Route: 030
     Dates: start: 20100801

REACTIONS (5)
  - MIGRAINE [None]
  - NAUSEA [None]
  - DIZZINESS [None]
  - OROPHARYNGEAL PAIN [None]
  - UTERINE HAEMORRHAGE [None]
